FAERS Safety Report 8296390-2 (Version None)
Quarter: 2012Q2

REPORT INFORMATION
  Report Type: 
  Country: None (occurrence: None)
  Receive Date: 20120418
  Receipt Date: 20120413
  Transmission Date: 20120825
  Serious: Yes (Hospitalization)
  Sender: FDA-Public Use
  Company Number: US-B.I. PHARMACEUTICALS,INC./RIDGEFIELD-2012-BP-07038BP

PATIENT
  Age: 93 Year
  Sex: Female

DRUGS (7)
  1. TOPROL-XL [Concomitant]
  2. LOSARTAN POTASSIUM [Concomitant]
  3. PRADAXA [Suspect]
     Indication: ATRIAL FIBRILLATION
     Dosage: 300 MG
     Route: 048
     Dates: start: 20110101, end: 20120409
  4. LASIX [Concomitant]
  5. IRON [Concomitant]
  6. VITAMIN B-12 [Concomitant]
  7. LEVOTHYROXINE SODIUM [Concomitant]

REACTIONS (4)
  - RENAL FAILURE ACUTE [None]
  - INTERNATIONAL NORMALISED RATIO INCREASED [None]
  - CREATININE RENAL CLEARANCE DECREASED [None]
  - THROMBIN TIME PROLONGED [None]
